FAERS Safety Report 5164967-9 (Version None)
Quarter: 2006Q4

REPORT INFORMATION
  Report Type: 
  Country: None (occurrence: None)
  Receive Date: 20061127
  Receipt Date: 20061117
  Transmission Date: 20070319
  Serious: Yes (Life-Threatening)
  Sender: FDA-Public Use
  Company Number: 06H-163-0311242-00

PATIENT
  Age: 32 Year
  Sex: Female

DRUGS (3)
  1. HYDROMORPHONE HCL [Suspect]
     Indication: PAIN
     Dosage: 1 MILLIGRAM/MILLILITERS, 0.2 MG PCA, 8 MIN LOCKOUT, 5MG 4HR LIMIT, INTRAVENOUS
     Route: 042
     Dates: start: 20061103, end: 20061103
  2. MORPHINE SULFATE [Concomitant]
  3. TORADOL [Concomitant]

REACTIONS (7)
  - CARDIO-RESPIRATORY ARREST [None]
  - DEPRESSED LEVEL OF CONSCIOUSNESS [None]
  - MIOSIS [None]
  - MUSCULOSKELETAL STIFFNESS [None]
  - PALLOR [None]
  - POST PROCEDURAL COMPLICATION [None]
  - PULSE ABSENT [None]
